FAERS Safety Report 10459103 (Version 3)
Quarter: 2014Q4

REPORT INFORMATION
  Report Type: Spontaneous
  Country: US (occurrence: None)
  Receive Date: 20140915
  Receipt Date: 20141014
  Transmission Date: 20150528
  Serious: Yes (Hospitalization)
  Sender: FDA-Public Use
  Company Number: 2014-US-010161

PATIENT
  Age: 59 Year
  Sex: Female

DRUGS (5)
  1. ALL OTHER NON-THERAPEUTIC PRODUCTS (HYPNOTIC) [Suspect]
     Active Substance: UNSPECIFIED INGREDIENT
     Indication: PRODUCT USED FOR UNKNOWN INDICATION
  2. GABAPENTIN. [Suspect]
     Active Substance: GABAPENTIN
     Indication: PRODUCT USED FOR UNKNOWN INDICATION
  3. XYREM [Suspect]
     Active Substance: SODIUM OXYBATE
     Indication: NARCOLEPSY
     Route: 048
     Dates: start: 20140811, end: 2014
  4. SEROQUEL [Suspect]
     Active Substance: QUETIAPINE FUMARATE
     Indication: PRODUCT USED FOR UNKNOWN INDICATION
  5. BENZODIAZEPINE DERIVATIVES [Suspect]
     Active Substance: BENZODIAZEPINE
     Indication: PRODUCT USED FOR UNKNOWN INDICATION
     Dates: end: 20140906

REACTIONS (13)
  - Drug withdrawal syndrome [None]
  - Unevaluable event [None]
  - Abasia [None]
  - Thirst [None]
  - Disorientation [None]
  - Insomnia [None]
  - Feeling abnormal [None]
  - Neck pain [None]
  - Nausea [None]
  - Chills [None]
  - Panic attack [None]
  - Somnolence [None]
  - Urinary tract infection [None]

NARRATIVE: CASE EVENT DATE: 201408
